FAERS Safety Report 17863625 (Version 1)
Quarter: 2020Q2

REPORT INFORMATION
  Report Type: Spontaneous
  Country: IT (occurrence: IT)
  Receive Date: 20200604
  Receipt Date: 20200604
  Transmission Date: 20200714
  Serious: Yes (Other)
  Sender: FDA-Public Use
  Company Number: IT-ALLERGAN-2021735US

PATIENT
  Sex: Male

DRUGS (9)
  1. LERCADIP [Concomitant]
     Active Substance: LERCANIDIPINE HYDROCHLORIDE
  2. TRITTICO [Concomitant]
     Active Substance: TRAZODONE HYDROCHLORIDE
  3. OMEPRAZOLE. [Concomitant]
     Active Substance: OMEPRAZOLE
  4. FOSFOMYCIN TROMETHAMINE - BP [Suspect]
     Active Substance: FOSFOMYCIN TROMETHAMINE
     Indication: UROSEPSIS
     Dosage: 2 G, QOD
     Route: 048
     Dates: start: 20200510, end: 20200514
  5. FUROSEMIDE. [Concomitant]
     Active Substance: FUROSEMIDE
  6. QUETIAPINE. [Concomitant]
     Active Substance: QUETIAPINE
  7. COUMADIN [Suspect]
     Active Substance: WARFARIN SODIUM
     Indication: ATRIAL FIBRILLATION
     Dosage: 2 MG, QD
     Route: 048
  8. RAMIPRIL. [Concomitant]
     Active Substance: RAMIPRIL
  9. BISOPROLOLFUMARAAT [Concomitant]
     Active Substance: BISOPROLOL FUMARATE

REACTIONS (7)
  - Melaena [Recovering/Resolving]
  - Overdose [Unknown]
  - Product use issue [Unknown]
  - Contraindicated product administered [Unknown]
  - Drug interaction [Unknown]
  - International normalised ratio abnormal [Recovering/Resolving]
  - Product use in unapproved indication [Unknown]

NARRATIVE: CASE EVENT DATE: 20200514
